FAERS Safety Report 5360878-4 (Version None)
Quarter: 2007Q2

REPORT INFORMATION
  Report Type: 
  Country: None (occurrence: None)
  Receive Date: 20070530
  Receipt Date: 20070326
  Transmission Date: 20071010
  Serious: No
  Sender: FDA-Public Use
  Company Number: 2007PV032398

PATIENT
  Age: 63 Year
  Sex: Female
  Weight: 114.76 kg

DRUGS (3)
  1. BYETTA [Suspect]
     Indication: DIABETES MELLITUS NON-INSULIN-DEPENDENT
     Dosage: 10 MCG; BID; SC, 5 MCG; BID; SC
     Route: 058
     Dates: start: 20070101
  2. GLIPIZIDE [Concomitant]
  3. AVANDIA [Concomitant]

REACTIONS (2)
  - INJECTION SITE EXTRAVASATION [None]
  - WEIGHT INCREASED [None]
